FAERS Safety Report 12081474 (Version 2)
Quarter: 2016Q1

REPORT INFORMATION
  Report Type: Report from Study
  Country: US (occurrence: US)
  Receive Date: 20160216
  Receipt Date: 20160321
  Transmission Date: 20160526
  Serious: Yes (Death, Other)
  Sender: FDA-Public Use
  Company Number: US-REGENERON PHARMACEUTICALS, INC.-2016-10153

PATIENT

DRUGS (4)
  1. EYLEA [Suspect]
     Active Substance: AFLIBERCEPT
     Indication: DIABETIC RETINOPATHY
     Dosage: 0.5 ML, Q 8-10 WEEKS (OD)
     Route: 031
     Dates: start: 20150522, end: 20150522
  2. EYLEA [Suspect]
     Active Substance: AFLIBERCEPT
     Dosage: 0.5 ML, Q 8-10 WEEKS (OD)
     Route: 031
     Dates: start: 20150714, end: 20150714
  3. EYLEA [Suspect]
     Active Substance: AFLIBERCEPT
     Dosage: 0.5 ML, Q 8-10 WEEKS (OS)
     Route: 031
     Dates: start: 20150807, end: 20150807
  4. EYLEA [Suspect]
     Active Substance: AFLIBERCEPT
     Indication: DIABETIC RETINAL OEDEMA
     Dosage: 0.5 ML, Q 8-10 WEEKS (OS)
     Route: 031
     Dates: start: 20150529, end: 20150529

REACTIONS (1)
  - Death [Fatal]

NARRATIVE: CASE EVENT DATE: 201601
